FAERS Safety Report 7477013-9 (Version None)
Quarter: 2011Q2

REPORT INFORMATION
  Report Type: 
  Country: None (occurrence: None)
  Receive Date: 20110512
  Receipt Date: 20110503
  Transmission Date: 20111010
  Serious: Yes (Hospitalization)
  Sender: FDA-Public Use
  Company Number: US-ASTRAZENECA-2011SE03872

PATIENT
  Age: 45 Year
  Sex: Male

DRUGS (1)
  1. NEXIUM [Suspect]
     Route: 048

REACTIONS (4)
  - PNEUMONIA [None]
  - HYPERSENSITIVITY [None]
  - TREATMENT NONCOMPLIANCE [None]
  - BRONCHITIS [None]
